FAERS Safety Report 8883288 (Version 1)
Quarter: 2012Q4

REPORT INFORMATION
  Report Type: 
  Country: US (occurrence: US)
  Receive Date: 20121102
  Receipt Date: 20121102
  Transmission Date: 20130627
  Serious: Yes (Death)
  Sender: FDA-Public Use
  Company Number: US-ROXANE LABORATORIES, INC.-2012-RO-02323RO

PATIENT
  Age: 26 Year

DRUGS (3)
  1. DIAZEPAM [Suspect]
  2. COCAINE [Suspect]
  3. OXYCODONE [Suspect]

REACTIONS (1)
  - Death [Fatal]
